FAERS Safety Report 7726602-2 (Version None)
Quarter: 2011Q3

REPORT INFORMATION
  Report Type: 
  Country: None (occurrence: None)
  Receive Date: 20110902
  Receipt Date: 20110822
  Transmission Date: 20111222
  Serious: Yes (Hospitalization)
  Sender: FDA-Public Use
  Company Number: MX-ELI_LILLY_AND_COMPANY-MX201108007036

PATIENT
  Age: 40 Year
  Sex: Female
  Weight: 100 kg

DRUGS (1)
  1. SYMBYAX [Suspect]
     Indication: SCHIZOPHRENIA
     Dosage: UNK
     Route: 048
     Dates: start: 20110816

REACTIONS (6)
  - ASPIRATION BRONCHIAL [None]
  - OFF LABEL USE [None]
  - VOMITING [None]
  - INTENTIONAL OVERDOSE [None]
  - ACUTE LUNG INJURY [None]
  - DYSPNOEA [None]
